FAERS Safety Report 13106636 (Version 3)
Quarter: 2019Q3

REPORT INFORMATION
  Report Type: Report from Study
  Country: SE (occurrence: SE)
  Receive Date: 20170111
  Receipt Date: 20190717
  Transmission Date: 20191004
  Serious: Yes (Death, Hospitalization, Other)
  Sender: FDA-Public Use
  Company Number: SE-BRISTOL-MYERS SQUIBB COMPANY-BMS-2016-111478

PATIENT
  Age: 48 Year
  Sex: Female
  Weight: 86 kg

DRUGS (14)
  1. KALEORID [Concomitant]
     Active Substance: POTASSIUM CHLORIDE
     Indication: HYPOKALAEMIA
     Dosage: 750 MG, QD
     Route: 048
     Dates: start: 20161015
  2. CARBOMER W/HYPROMELLOSE [Concomitant]
     Indication: PRODUCT USED FOR UNKNOWN INDICATION
     Route: 065
  3. PRIMPERAN [Concomitant]
     Active Substance: METOCLOPRAMIDE HYDROCHLORIDE
     Indication: NAUSEA
     Dosage: 30 MG, UNK
     Route: 048
     Dates: start: 20160722
  4. ALVEDON [Concomitant]
     Active Substance: ACETAMINOPHEN
     Indication: PAIN
     Dosage: 500 MG, QD
     Route: 048
     Dates: start: 20160722
  5. OXASCAND [Concomitant]
     Active Substance: OXAZEPAM
     Indication: ANXIETY
     Dosage: 5 MG, QD
     Route: 048
     Dates: start: 20160706
  6. PREDNISOLONE. [Concomitant]
     Active Substance: PREDNISOLONE
     Indication: PYREXIA
     Route: 065
  7. NIVOLUMAB [Suspect]
     Active Substance: NIVOLUMAB
     Indication: MALIGNANT MELANOMA
     Dosage: 1 DF, UNK
     Route: 042
     Dates: start: 20160805, end: 20161227
  8. IPILIMUMAB [Suspect]
     Active Substance: IPILIMUMAB
     Indication: MALIGNANT MELANOMA
     Dosage: 1 DF, UNK
     Route: 042
     Dates: start: 20160805, end: 20161007
  9. KETOGAN                            /00129101/ [Concomitant]
     Active Substance: KETOBEMIDONE HYDROCHLORIDE
     Indication: PAIN
     Dosage: UNK
     Route: 048
     Dates: start: 20160817
  10. CITODON                            /00116401/ [Concomitant]
     Active Substance: ACETAMINOPHEN\CODEINE PHOSPHATE
     Indication: PAIN
     Dosage: 500 MG, UNK
     Route: 048
     Dates: start: 20160706
  11. HYALURONIC ACID [Concomitant]
     Active Substance: HYALURONIC ACID
     Indication: PRODUCT USED FOR UNKNOWN INDICATION
     Route: 065
  12. ARTELAC                            /00002701/ [Concomitant]
     Active Substance: ASPIRIN
     Indication: PRODUCT USED FOR UNKNOWN INDICATION
     Dosage: 1 DF: 1 DROP
     Route: 047
     Dates: start: 20161015
  13. IMOVANE [Concomitant]
     Active Substance: ZOPICLONE
     Indication: INSOMNIA
     Dosage: 7.5 MG, UNK
     Route: 048
     Dates: start: 20161018
  14. PREDNISOLONE. [Concomitant]
     Active Substance: PREDNISOLONE
     Indication: ALANINE AMINOTRANSFERASE INCREASED
     Dosage: 20 MG, UNK
     Route: 048
     Dates: start: 20161015

REACTIONS (1)
  - Aplastic anaemia [Fatal]

NARRATIVE: CASE EVENT DATE: 20161220
